FAERS Safety Report 18357720 (Version 1)
Quarter: 2020Q4

REPORT INFORMATION
  Report Type: Report from Study
  Country: GB (occurrence: GB)
  Receive Date: 20201007
  Receipt Date: 20201007
  Transmission Date: 20210114
  Serious: Yes (Hospitalization)
  Sender: FDA-Public Use
  Company Number: GB-PURDUE-USA-2020-0169486

PATIENT
  Sex: Female

DRUGS (4)
  1. PENICILLIN                         /00000901/ [Suspect]
     Active Substance: PENICILLIN G
     Indication: GINGIVAL DISORDER
  2. PENICILLIN                         /00000901/ [Suspect]
     Active Substance: PENICILLIN G
     Indication: TOOTHACHE
     Dosage: UNK
     Route: 065
  3. MORPHINE SULFATE (SIMILAR TO NDA 19-516) [Suspect]
     Active Substance: MORPHINE SULFATE
     Indication: PRODUCT USED FOR UNKNOWN INDICATION
     Dosage: UNK
     Route: 065
  4. ADALIMUMAB [Suspect]
     Active Substance: ADALIMUMAB
     Indication: ANKYLOSING SPONDYLITIS
     Dosage: 40 MG, (40 MG, Q2W)
     Route: 058
     Dates: start: 20191106

REACTIONS (14)
  - Gait inability [Unknown]
  - Cellulitis [Not Recovered/Not Resolved]
  - Toxicity to various agents [Unknown]
  - Joint swelling [Unknown]
  - Contusion [Unknown]
  - Skin exfoliation [Unknown]
  - Pruritus [Unknown]
  - Toothache [Unknown]
  - Rash [Unknown]
  - Pain in extremity [Unknown]
  - Gingival disorder [Unknown]
  - Product dose omission issue [Unknown]
  - Aphasia [Unknown]
  - Hyperhidrosis [Unknown]
